FAERS Safety Report 10268813 (Version 1)
Quarter: 2014Q2

REPORT INFORMATION
  Report Type: Spontaneous
  Country: US (occurrence: US)
  Receive Date: 20140630
  Receipt Date: 20140630
  Transmission Date: 20141212
  Serious: Yes (Hospitalization)
  Sender: FDA-Public Use
  Company Number: US-GLAXOSMITHKLINE-A1078572A

PATIENT
  Age: 60 Year
  Sex: Male

DRUGS (22)
  1. LOVAZA [Suspect]
     Indication: PRODUCT USED FOR UNKNOWN INDICATION
     Dosage: 2CAP TWICE PER DAY
     Route: 048
  2. REQUIP XL [Suspect]
     Indication: RESTLESS LEGS SYNDROME
     Dosage: 4MG PER DAY
     Route: 048
  3. ALBUTEROL [Concomitant]
  4. APIDRA [Concomitant]
  5. ASPIRIN [Concomitant]
  6. CARVEDILOL [Concomitant]
  7. FUROSEMIDE [Concomitant]
  8. IMDUR [Concomitant]
  9. JANUVIA [Concomitant]
  10. LANTUS [Concomitant]
  11. LEVOFLOXACIN [Concomitant]
  12. LIPITOR [Concomitant]
  13. LISINOPRIL [Concomitant]
  14. OXYGEN [Concomitant]
  15. NEURONTIN [Concomitant]
  16. NEXIUM [Concomitant]
  17. NITROSTAT [Concomitant]
  18. PRO-AIR [Concomitant]
  19. COUGH SYRUP WITH CODEINE [Concomitant]
  20. TRIAMCINOLONE ACETONIDE [Concomitant]
  21. TRILIPIX [Concomitant]
  22. VITAMIN D [Concomitant]

REACTIONS (5)
  - Squamous cell carcinoma of lung [Not Recovered/Not Resolved]
  - Haemoptysis [Not Recovered/Not Resolved]
  - Cough [Not Recovered/Not Resolved]
  - Thrombosis [Not Recovered/Not Resolved]
  - Pneumonia [Not Recovered/Not Resolved]
